FAERS Safety Report 8426479-6 (Version None)
Quarter: 2012Q2

REPORT INFORMATION
  Report Type: 
  Country: None (occurrence: None)
  Receive Date: 20120323
  Receipt Date: 20111115
  Transmission Date: 20120825
  Serious: Yes (Disabling)
  Sender: FDA-Public Use
  Company Number: 163-21880-11080538

PATIENT
  Age: 47 Year
  Sex: Male
  Weight: 84.369 kg

DRUGS (5)
  1. REVLIMID [Suspect]
     Indication: MULTIPLE MYELOMA
     Dosage: 10 MG, 1 IN 1 D, PO
     Route: 048
     Dates: start: 20110427, end: 20110628
  2. ASPIRIN TAB [Concomitant]
  3. NEURONTIN [Concomitant]
  4. RESTORIL [Concomitant]
  5. LORTAB [Concomitant]

REACTIONS (3)
  - NEUROPATHY PERIPHERAL [None]
  - PAIN IN EXTREMITY [None]
  - RASH [None]
